FAERS Safety Report 18611349 (Version 3)
Quarter: 2021Q1

REPORT INFORMATION
  Report Type: Spontaneous
  Country: IN (occurrence: IN)
  Receive Date: 20201214
  Receipt Date: 20210301
  Transmission Date: 20210419
  Serious: Yes (Other)
  Sender: FDA-Public Use
  Company Number: IN-PFIZER INC-2020492779

PATIENT
  Age: 73 Year
  Sex: Female

DRUGS (7)
  1. PALBACE [Suspect]
     Active Substance: PALBOCICLIB
     Indication: BREAST CANCER METASTATIC
     Dosage: 100MG CYCLIC (ONCE DAILY 21 DAYS THEN 7 DAYS OFF) TAKE WITH FOOD
     Route: 048
     Dates: start: 20201121
  2. CC74 [Concomitant]
     Dosage: UNK UNK, 1X/DAY (CHEWABLE)
     Route: 048
  3. RABICIP [Concomitant]
     Indication: HYPERCHLORHYDRIA
     Dosage: 20 MG, 1X/DAY
     Route: 048
  4. ZOLEDRONIC ACID [Concomitant]
     Active Substance: ZOLEDRONIC ACID
     Dosage: 4 MG IN 100ML NS OVER 30MINUTES
     Route: 042
  5. FEMARA [Concomitant]
     Active Substance: LETROZOLE
     Dosage: 2.5 MG, 1X/DAY
     Route: 048
  6. RABICIP [Concomitant]
     Indication: FLATULENCE
  7. CC74 [Concomitant]
     Dosage: UNK UNK, 2X/DAY
     Route: 048

REACTIONS (2)
  - Cough [Unknown]
  - Hyperthyroidism [Unknown]
